FAERS Safety Report 7076726-0 (Version None)
Quarter: 2010Q4

REPORT INFORMATION
  Report Type: 
  Country: None (occurrence: None)
  Receive Date: 20101101
  Receipt Date: 20101014
  Transmission Date: 20110411
  Serious: Yes (Other)
  Sender: FDA-Public Use
  Company Number: JP-AMGEN-US432455

PATIENT

DRUGS (15)
  1. ENBREL [Suspect]
     Indication: RHEUMATOID ARTHRITIS
     Dosage: 25 MG, QWK
     Route: 058
     Dates: start: 20100325
  2. ENBREL [Suspect]
     Dosage: UNK UNK, UNK
     Route: 058
     Dates: start: 20100801
  3. ENBREL [Suspect]
     Dosage: DOSE AND FREQUENCY NOT SPECIFIED
     Route: 058
     Dates: start: 20100811, end: 20100917
  4. ENBREL [Suspect]
     Dosage: DOSE AND FREQUENCY NOT SPECIFIED
     Route: 058
     Dates: start: 20101001
  5. METHOTREXATE [Suspect]
     Indication: RHEUMATOID ARTHRITIS
     Dosage: 6 MG, QWK
     Route: 048
     Dates: start: 20080718, end: 20100803
  6. METHOTREXATE [Suspect]
     Dosage: UNK UNK, UNK
     Route: 048
     Dates: start: 20100801
  7. FAMOTIDINE [Concomitant]
     Route: 048
  8. LAMISIL [Concomitant]
  9. DIOVAN [Concomitant]
     Route: 048
  10. ALFACALCIDOL [Concomitant]
     Route: 048
  11. FOSAMAX [Concomitant]
     Dosage: UNKOWN START DATE; DOSE: 35 MG/WK; ON 10-JUN-2010 WAS DISCONTINUED FOR 2 MONTHS
     Route: 048
  12. RHEUMATREX [Suspect]
     Indication: RHEUMATOID ARTHRITIS
     Route: 048
     Dates: start: 20080718, end: 20100721
  13. RHEUMATREX [Suspect]
     Dosage: DOSE AND FREQUENCY NOT SPECIFIED
     Dates: start: 20100722, end: 20100803
  14. RHEUMATREX [Suspect]
     Dosage: DOSE AND FREQUENCY NOT SPECIFIED
     Route: 048
     Dates: start: 20101001
  15. PRELONE [Concomitant]
     Dosage: 2.5 MG/DAY (DATES UNKNOWN); THEN WAS 2.5 MG/2 DAYS FROM 27-MAY-2010 TO UNKNOWN
     Route: 048

REACTIONS (10)
  - CHEST DISCOMFORT [None]
  - HIGH DENSITY LIPOPROTEIN [None]
  - LYMPHADENOPATHY MEDIASTINAL [None]
  - MALAISE [None]
  - OSTEOARTHRITIS [None]
  - PRURITUS [None]
  - PURULENCE [None]
  - SYSTEMIC LUPUS ERYTHEMATOSUS [None]
  - TINEA INFECTION [None]
  - WEIGHT DECREASED [None]
